FAERS Safety Report 8350419 (Version 2)
Quarter: 2013Q4

REPORT INFORMATION
  Report Type: Spontaneous
  Country: US (occurrence: US)
  Receive Date: 20120124
  Receipt Date: 20131213
  Transmission Date: 20140711
  Serious: Yes (Other)
  Sender: FDA-Public Use
  Company Number: US-BAYER-2012-005075

PATIENT
  Age: 51 Year
  Sex: Female
  Weight: 57.6 kg

DRUGS (9)
  1. YAZ [Suspect]
     Indication: CONTRACEPTION
     Dosage: UNK
     Dates: start: 20061226, end: 20070125
  2. YAZ [Suspect]
     Indication: DYSFUNCTIONAL UTERINE BLEEDING
  3. YASMIN [Suspect]
     Indication: CONTRACEPTION
     Dosage: UNK
     Dates: start: 20070125, end: 20091021
  4. NAPROXEN [Concomitant]
     Indication: ARTHRALGIA
     Dosage: UNK
     Dates: start: 20010109, end: 20090511
  5. AMITRIPTYLIN [Concomitant]
     Indication: HEADACHE
     Dosage: UNK
     Dates: start: 20010326, end: 2009
  6. HYDROCODONE W/APAP [Concomitant]
  7. PROCHLORPERAZINE MALEATE [Concomitant]
  8. FLUOXETINE HCL [Concomitant]
  9. METHYLPREDNISOLONE [Concomitant]

REACTIONS (6)
  - Cerebrovascular accident [None]
  - Blindness unilateral [None]
  - Retinal artery occlusion [None]
  - Pain [None]
  - Injury [None]
  - Emotional distress [None]
